FAERS Safety Report 8631236 (Version 3)
Quarter: 2012Q4

REPORT INFORMATION
  Report Type: 
  Country: US (occurrence: US)
  Receive Date: 20120622
  Receipt Date: 20121126
  Transmission Date: 20130627
  Serious: Yes (Death, Life-Threatening, Hospitalization)
  Sender: FDA-Public Use
  Company Number: US-INCYTE CORPORATION-2012IN001066

PATIENT
  Sex: Male

DRUGS (1)
  1. JAKAFI [Suspect]
     Indication: MYELOFIBROSIS
     Dosage: 5 mg, bid
     Route: 048
     Dates: start: 20120126, end: 20120614

REACTIONS (1)
  - General physical health deterioration [Fatal]
